FAERS Safety Report 10028569 (Version 1)
Quarter: 2014Q1

REPORT INFORMATION
  Report Type: Spontaneous
  Country: CN (occurrence: None)
  Receive Date: 20140319
  Receipt Date: 20140319
  Transmission Date: 20141002
  Serious: Yes (Other)
  Sender: FDA-Public Use
  Company Number: SYM-2014-18558

PATIENT
  Sex: 0

DRUGS (3)
  1. FLUOROURACIL [Suspect]
     Indication: COLORECTAL CANCER
     Route: 040
  2. IRINOTECAN [Suspect]
     Indication: COLORECTAL CANCER
     Dosage: EVERY OTHER WEEK, INTRAVENOUS (NOT OTHERWISE SPECIFIED)
     Route: 042
  3. LEUCOVORIN (FOLINIC ACID) (FOLINIC ACID) [Suspect]
     Indication: COLORECTAL CANCER
     Dosage: EVERY OTHER WEEK, INTRAVENOUS (NOT OTHERWISE SPECIFIED)
     Route: 042

REACTIONS (1)
  - Bone marrow failure [None]
